FAERS Safety Report 14690449 (Version 3)
Quarter: 2019Q3

REPORT INFORMATION
  Report Type: Spontaneous
  Country: US (occurrence: US)
  Receive Date: 20180328
  Receipt Date: 20190829
  Transmission Date: 20191004
  Serious: No
  Sender: FDA-Public Use
  Company Number: US-ACTELION-A-NJ2018-169813

PATIENT
  Age: 53 Year
  Sex: Female
  Weight: 74.8 kg

DRUGS (18)
  1. MYCOPHENOLATE MOFETIL. [Concomitant]
     Active Substance: MYCOPHENOLATE MOFETIL
     Dosage: 1000 MG, OD, 1500 MG IN AM AND 1000 MG IN PM
  2. SULFAMETHOXAZOL W/TRIMETOPRIM [Concomitant]
     Active Substance: SULFAMETHOXAZOLE\TRIMETHOPRIM
     Dosage: 3 TIMES A WEEK
  3. ESCITALOPRAM [Concomitant]
     Active Substance: ESCITALOPRAM OXALATE
     Dosage: 10 MG
  4. TRACLEER [Suspect]
     Active Substance: BOSENTAN
     Indication: PULMONARY ARTERIAL HYPERTENSION
     Dosage: 125 MG, BID
     Route: 048
     Dates: start: 20091105
  5. ERGOCALCIFEROL. [Concomitant]
     Active Substance: ERGOCALCIFEROL
     Dosage: 50000 UNITS/ WEEK
  6. TYVASO [Concomitant]
     Active Substance: TREPROSTINIL
     Dosage: 12 PUFFS QID
  7. OMEPRAZOLE. [Concomitant]
     Active Substance: OMEPRAZOLE
     Dosage: 20 MG, QD
  8. LEVOTHYROXINE. [Concomitant]
     Active Substance: LEVOTHYROXINE
     Dosage: 100 MCG
     Route: 048
  9. CELLCEPT [Suspect]
     Active Substance: MYCOPHENOLATE MOFETIL\MYCOPHENOLATE MOFETIL HYDROCHLORIDE
     Indication: PRODUCT USED FOR UNKNOWN INDICATION
     Dosage: 3 G
     Route: 065
  10. FAMOTIDINE. [Concomitant]
     Active Substance: FAMOTIDINE
     Dosage: 20 MG, BID
  11. TYVASO [Concomitant]
     Active Substance: TREPROSTINIL
     Dosage: 9-15  BREATHS 4 TIMES DAILY
  12. MOMETASONE [Concomitant]
     Active Substance: MOMETASONE
     Dosage: 2 SPRAYS IN THE NOSE ONCE DAILY
  13. ASPIRIN. [Concomitant]
     Active Substance: ASPIRIN
     Dosage: 81 MG, OD
     Route: 048
  14. ATORVASTATIN [Concomitant]
     Active Substance: ATORVASTATIN
     Dosage: 20 MG, OD
  15. SILDENAFIL. [Concomitant]
     Active Substance: SILDENAFIL
     Dosage: 20 MG, TID
     Route: 048
     Dates: start: 2007
  16. PREDNISONE. [Concomitant]
     Active Substance: PREDNISONE
     Dosage: 10 MG, OD
  17. ALBUTEROL. [Concomitant]
     Active Substance: ALBUTEROL
     Dosage: 90 MCG, 2 PUFFS EVERY 6 HRS
     Route: 055
  18. OXYGEN. [Concomitant]
     Active Substance: OXYGEN
     Dosage: 4-6 L/MIN, PRN

REACTIONS (11)
  - Burning sensation [Unknown]
  - Dyspnoea [Unknown]
  - Tricuspid valve incompetence [Not Recovered/Not Resolved]
  - Weight [Unknown]
  - Fatigue [Unknown]
  - Aortic arteriosclerosis [Not Recovered/Not Resolved]
  - Nausea [Unknown]
  - Cough [Unknown]
  - Disease progression [Unknown]
  - Lung disorder [Unknown]
  - Ventricular enlargement [Recovering/Resolving]

NARRATIVE: CASE EVENT DATE: 201111
